FAERS Safety Report 12900340 (Version 2)
Quarter: 2016Q4

REPORT INFORMATION
  Report Type: Spontaneous
  Country: CA (occurrence: CA)
  Receive Date: 20161101
  Receipt Date: 20161107
  Transmission Date: 20170207
  Serious: Yes (Life-Threatening)
  Sender: FDA-Public Use
  Company Number: PHHY2016CA147980

PATIENT
  Age: 60 Year
  Sex: Female

DRUGS (1)
  1. TASIGNA [Suspect]
     Active Substance: NILOTINIB
     Indication: CHRONIC MYELOID LEUKAEMIA
     Dosage: 300 MG, BID
     Route: 048
     Dates: start: 20120208, end: 20160608

REACTIONS (3)
  - Malabsorption [Unknown]
  - Drug resistance [Unknown]
  - Intestinal ischaemia [Recovering/Resolving]

NARRATIVE: CASE EVENT DATE: 201511
